FAERS Safety Report 5488113-7 (Version None)
Quarter: 2007Q4

REPORT INFORMATION
  Report Type: 
  Country: None (occurrence: None)
  Receive Date: 20071004
  Receipt Date: 20070410
  Transmission Date: 20080405
  Serious: Yes (Other)
  Sender: FDA-Public Use
  Company Number: 020014

PATIENT
  Sex: Female

DRUGS (1)
  1. MAXAIR TM AUTOHALER [Suspect]
     Indication: ASTHMA
     Dosage: 2 PUFFS Q4HR PRN - RESPIRATORY (INHALATION)
     Route: 055

REACTIONS (1)
  - PALPITATIONS [None]
